FAERS Safety Report 24065832 (Version 1)
Quarter: 2024Q3

REPORT INFORMATION
  Report Type: Spontaneous
  Country: US (occurrence: US)
  Receive Date: 20240709
  Receipt Date: 20240709
  Transmission Date: 20241017
  Serious: Yes (Other)
  Sender: VIRTUS PHARMACEUTICALS
  Company Number: US-VIRTUS PHARMACEUTICALS, LLC-2023VTS00014

PATIENT
  Sex: Female

DRUGS (2)
  1. PROGESTERONE [Suspect]
     Active Substance: PROGESTERONE
  2. PROMETRIUM [Suspect]
     Active Substance: PROGESTERONE

REACTIONS (2)
  - Anaphylactic reaction [Recovered/Resolved]
  - Unevaluable event [Recovered/Resolved]
